FAERS Safety Report 9733046 (Version 1)
Quarter: 2013Q4

REPORT INFORMATION
  Report Type: Spontaneous
  Country: US (occurrence: None)
  Receive Date: 20131204
  Receipt Date: 20131204
  Transmission Date: 20140711
  Serious: Yes (Other)
  Sender: FDA-Public Use
  Company Number: None

PATIENT
  Age: 37 Year
  Sex: Male
  Weight: 79.38 kg

DRUGS (9)
  1. FLUCONAZOLE [Suspect]
     Indication: COCCIDIOIDOMYCOSIS
     Dosage: 200 MG, 2 TABLETS BY MOUTH TWICE A DAY, TWICE DAILY, BY MOUTH
     Route: 048
     Dates: start: 200601, end: 201310
  2. FLUCONAZOLE [Suspect]
     Dosage: 200 MG, 2 TABLETS BY MOUTH TWICE A DAY, TWICE DAILY, BY MOUTH
     Route: 048
     Dates: start: 200601, end: 201310
  3. ALLER-CHLOR [Concomitant]
  4. LORATADINE [Concomitant]
  5. IBUPROFEN [Concomitant]
  6. FIBER LAX [Concomitant]
  7. DOCUSATE SODIUM [Concomitant]
  8. SUMPTRIPTAN [Concomitant]
  9. TRACONAOLE [Concomitant]

REACTIONS (7)
  - Skin disorder [None]
  - Lip dry [None]
  - Nasal dryness [None]
  - Epistaxis [None]
  - Hypertension [None]
  - Headache [None]
  - Haemorrhoids [None]
